FAERS Safety Report 15331155 (Version 1)
Quarter: 2018Q3

REPORT INFORMATION
  Report Type: Spontaneous
  Country: GB (occurrence: DE)
  Receive Date: 20180829
  Receipt Date: 20180829
  Transmission Date: 20181010
  Serious: Yes (Hospitalization)
  Sender: FDA-Public Use
  Company Number: DE-FRESENIUS KABI-FK201808856

PATIENT
  Age: 78 Year
  Sex: Male
  Weight: 84 kg

DRUGS (29)
  1. MOVICOL [Concomitant]
     Active Substance: POLYETHYLENE GLYCOL 3350\POTASSIUM CHLORIDE\SODIUM BICARBONATE\SODIUM CHLORIDE
     Indication: CONSTIPATION
     Route: 048
  2. MCP [Concomitant]
     Active Substance: METOCLOPRAMIDE HYDROCHLORIDE
     Indication: NAUSEA
     Dosage: 30 MG, QD
     Route: 048
     Dates: start: 20170404, end: 20170404
  3. PALLADON [Concomitant]
     Active Substance: HYDROMORPHONE
     Dosage: REDUCED FROM 2X24 MG
     Route: 048
     Dates: start: 20170214
  4. METOCLOPRAMIDE. [Concomitant]
     Active Substance: METOCLOPRAMIDE
     Indication: NAUSEA
     Dosage: 30 MG, QD
     Route: 048
     Dates: start: 20170404, end: 20170418
  5. ZOFRAN [Concomitant]
     Active Substance: ONDANSETRON HYDROCHLORIDE
     Dosage: 16 MG, QD
     Route: 048
  6. PANTOPRAZOL [Concomitant]
     Active Substance: PANTOPRAZOLE SODIUM
     Dosage: 40 MG, QD
     Route: 048
  7. VOMEX A [Concomitant]
     Active Substance: DIMENHYDRINATE
     Indication: NAUSEA
     Dosage: 150 MG, UNK (2?3 DAILY)
     Route: 048
  8. SIFROL [Concomitant]
     Active Substance: PRAMIPEXOLE
     Indication: PRODUCT USED FOR UNKNOWN INDICATION
     Dosage: 1.57 MG, QD
     Route: 048
  9. NOVALGIN (CAFFEINE\PARACETAMOL\PROPYPHENAZONE) [Concomitant]
     Active Substance: ACETAMINOPHEN\CAFFEINE\PROPYPHENAZONE
     Indication: PRODUCT USED FOR UNKNOWN INDICATION
     Dosage: 120 DRP, QD
     Route: 048
  10. GEMCITABINE [Suspect]
     Active Substance: GEMCITABINE\GEMCITABINE HYDROCHLORIDE
     Indication: PANCREATIC CARCINOMA METASTATIC
     Dosage: 2050 MG, QD (1000 MG/M2)
     Route: 041
  11. CLOPIDOGREL [Concomitant]
     Active Substance: CLOPIDOGREL BISULFATE
     Dosage: 76 MG, QD
     Route: 048
  12. PALLADON [Concomitant]
     Active Substance: HYDROMORPHONE
     Dosage: 2 IN THE MORNING 1 IN THE AFTERNOON AND 2.4 IN THE EVENING
     Route: 048
  13. ABRAXANE [Suspect]
     Active Substance: PACLITAXEL
     Indication: PANCREATIC CARCINOMA METASTATIC
     Dosage: 256 MG, QD (125 MG/M2 )
     Route: 041
  14. MCP [Concomitant]
     Active Substance: METOCLOPRAMIDE HYDROCHLORIDE
     Dosage: 30 MG, QD
     Route: 048
     Dates: start: 20170418, end: 20170418
  15. PANTOPRAZOL [Concomitant]
     Active Substance: PANTOPRAZOLE SODIUM
     Indication: CONSTIPATION
     Route: 048
  16. PALLADON [Concomitant]
     Active Substance: HYDROMORPHONE
     Indication: PAIN
     Dosage: 40 MG, QD
     Route: 048
  17. HALOPERIDOL. [Concomitant]
     Active Substance: HALOPERIDOL
     Indication: CONSTIPATION
     Dosage: 15 MG, QD
     Route: 048
  18. ZOFRAN [Concomitant]
     Active Substance: ONDANSETRON HYDROCHLORIDE
     Route: 048
     Dates: start: 20170404, end: 20170418
  19. CLOPIDOGREL [Concomitant]
     Active Substance: CLOPIDOGREL BISULFATE
     Indication: PRODUCT USED FOR UNKNOWN INDICATION
     Route: 048
  20. DOMPERDONE [Concomitant]
     Indication: PRODUCT USED FOR UNKNOWN INDICATION
     Dosage: 30 MG, QD
     Route: 048
  21. PALLADON [Concomitant]
     Active Substance: HYDROMORPHONE
     Dosage: 3 MG, QD
     Route: 048
  22. ABSTRAL [Concomitant]
     Active Substance: FENTANYL CITRATE
     Indication: PAIN
     Dosage: 4000 UG, UNK (PRN UP TO 4/DAY)
     Route: 060
  23. ZOFRAN [Concomitant]
     Active Substance: ONDANSETRON HYDROCHLORIDE
     Indication: NAUSEA
     Route: 041
  24. MCP [Concomitant]
     Active Substance: METOCLOPRAMIDE HYDROCHLORIDE
     Route: 048
     Dates: start: 20170411, end: 20170411
  25. NACL [Concomitant]
     Active Substance: SODIUM CHLORIDE
     Indication: PRODUCT USED FOR UNKNOWN INDICATION
     Route: 041
  26. ONDANSETRON [Concomitant]
     Active Substance: ONDANSETRON
     Indication: PRODUCT USED FOR UNKNOWN INDICATION
     Route: 041
  27. ZOPICLON [Concomitant]
     Active Substance: ZOPICLONE
     Indication: CONSTIPATION
     Dosage: 7.5 MG, QD
     Route: 048
  28. NOVALGIN (CAFFEINE\PARACETAMOL\PROPYPHENAZONE) [Concomitant]
     Active Substance: ACETAMINOPHEN\CAFFEINE\PROPYPHENAZONE
     Dosage: 4000 MG, QD
     Route: 048
  29. PRAMIPEXOL [Concomitant]
     Active Substance: PRAMIPEXOLE
     Indication: PRODUCT USED FOR UNKNOWN INDICATION
     Dosage: 1.57 MG, QD
     Route: 048

REACTIONS (7)
  - Device related infection [Not Recovered/Not Resolved]
  - Abdominal pain [Recovered/Resolved]
  - Neutropenia [Recovered/Resolved]
  - Leukopenia [Recovered/Resolved]
  - Thrombocytopenia [Recovered/Resolved]
  - C-reactive protein increased [Not Recovered/Not Resolved]
  - Infection [Recovered/Resolved]

NARRATIVE: CASE EVENT DATE: 201703
